FAERS Safety Report 4407568-X (Version None)
Quarter: 2004Q3

REPORT INFORMATION
  Report Type: 
  Country: None (occurrence: None)
  Receive Date: 20040721
  Receipt Date: 20040706
  Transmission Date: 20050211
  Serious: Yes (Life-Threatening)
  Sender: FDA-Public Use
  Company Number: JP-SHR-04-024118

PATIENT
  Age: 62 Year
  Sex: Female

DRUGS (8)
  1. PROSCOPE 300 (IOPROMIDE) N/A [Suspect]
     Indication: COMPUTERISED TOMOGRAM
     Dosage: 100 ML, 1 DOSE, INTRAVENOUS
     Route: 042
     Dates: start: 20040302, end: 20040302
  2. HUMACART-N (INSULIN HUMAN) [Concomitant]
  3. MAGNESIUM OXIDE (MAGNESIUM OXIDE) [Concomitant]
  4. MEVALOTIN /JPN/ (PRAVASTATIN SODIUM) [Concomitant]
  5. LEVOFLOXACIN [Concomitant]
  6. KALLIKREIN (KALLIDINOGENASE) [Concomitant]
  7. METHYCOBAL (MECOBALAMIN) [Concomitant]
  8. EUGLUCON (GLIBENCLAMIDE) [Concomitant]

REACTIONS (9)
  - BLOOD PRESSURE DECREASED [None]
  - CONDITION AGGRAVATED [None]
  - DEPRESSED LEVEL OF CONSCIOUSNESS [None]
  - DIABETES MELLITUS [None]
  - FALL [None]
  - PRURITUS [None]
  - PULSE PRESSURE DECREASED [None]
  - SHOCK [None]
  - SNEEZING [None]
